FAERS Safety Report 9641335 (Version 1)
Quarter: 2013Q4

REPORT INFORMATION
  Report Type: Spontaneous
  Country: US (occurrence: None)
  Receive Date: 20131022
  Receipt Date: 20131022
  Transmission Date: 20140711
  Serious: No
  Sender: FDA-Public Use
  Company Number: None

PATIENT
  Age: 68 Year
  Sex: Female
  Weight: 77.11 kg

DRUGS (11)
  1. LUCENTIS [Suspect]
     Indication: AGE-RELATED MACULAR DEGENERATION
     Route: 047
     Dates: start: 20130616, end: 20130916
  2. PRESERVISION [Concomitant]
  3. CALCIUM/MAG/ZINC [Concomitant]
  4. OMEGA3/KRILL [Concomitant]
  5. SPIRULINA [Concomitant]
  6. CHLORELLA [Concomitant]
  7. IBUPROFEN [Concomitant]
  8. B-12 [Concomitant]
  9. CHROMIUM PICOLINATE [Concomitant]
  10. HAIR/SKIN/NAILS [Concomitant]
  11. COQ10 [Concomitant]

REACTIONS (1)
  - Anterior chamber inflammation [None]
